FAERS Safety Report 8287795-4 (Version None)
Quarter: 2012Q2

REPORT INFORMATION
  Report Type: 
  Country: None (occurrence: None)
  Receive Date: 20120416
  Receipt Date: 20120404
  Transmission Date: 20120825
  Serious: Yes (Hospitalization, Other)
  Sender: FDA-Public Use
  Company Number: JP-MERCK-1204USA01146

PATIENT
  Age: 60 Year
  Sex: Male

DRUGS (2)
  1. JANUVIA [Suspect]
     Indication: DIABETES MELLITUS
     Route: 048
     Dates: start: 20111001, end: 20120201
  2. JANUVIA [Suspect]
     Route: 048
     Dates: start: 20110101

REACTIONS (4)
  - BLOOD CREATININE INCREASED [None]
  - RASH [None]
  - RENAL FAILURE [None]
  - BACK PAIN [None]
